FAERS Safety Report 6174947-2 (Version None)
Quarter: 2009Q2

REPORT INFORMATION
  Report Type: 
  Country: None (occurrence: None)
  Receive Date: 20090430
  Receipt Date: 20081020
  Transmission Date: 20091009
  Serious: No
  Sender: FDA-Public Use
  Company Number: US-ASTRAZENECA-2008UW23223

PATIENT
  Sex: Female
  Weight: 97.5 kg

DRUGS (8)
  1. NEXIUM [Suspect]
     Route: 048
  2. PULMICORT [Concomitant]
     Route: 055
  3. ETHYNOL [Concomitant]
  4. CYMBALTA [Concomitant]
  5. PLAVIX [Concomitant]
  6. FEXODINE [Concomitant]
  7. DIOVAN [Concomitant]
  8. SIMVASTIN [Concomitant]

REACTIONS (1)
  - HYPERHIDROSIS [None]
